FAERS Safety Report 7790798-7 (Version None)
Quarter: 2011Q3

REPORT INFORMATION
  Report Type: 
  Country: None (occurrence: None)
  Receive Date: 20110930
  Receipt Date: 20110927
  Transmission Date: 20111222
  Serious: Yes (Death)
  Sender: FDA-Public Use
  Company Number: AU-MERCK-1109USA02972

PATIENT
  Age: 85 Year
  Sex: Female

DRUGS (2)
  1. VORICONAZOLE [Suspect]
     Route: 065
  2. ZOCOR [Suspect]
     Route: 048
     Dates: end: 20110721

REACTIONS (2)
  - RHABDOMYOLYSIS [None]
  - RENAL FAILURE ACUTE [None]
